FAERS Safety Report 24248069 (Version 1)
Quarter: 2024Q3

REPORT INFORMATION
  Report Type: Report from Study
  Country: JP (occurrence: JP)
  Receive Date: 20240826
  Receipt Date: 20240826
  Transmission Date: 20241017
  Serious: Yes (Other)
  Sender: ROCHE
  Company Number: JP-CHUGAI-2024028647AA

PATIENT
  Age: 73 Year
  Sex: Female
  Weight: 60.5 kg

DRUGS (34)
  1. POLIVY [Suspect]
     Active Substance: POLATUZUMAB VEDOTIN-PIIQ
     Indication: Diffuse large B-cell lymphoma
     Dosage: 108 MILLIGRAM
     Route: 042
     Dates: start: 20231020, end: 20231020
  2. POLIVY [Suspect]
     Active Substance: POLATUZUMAB VEDOTIN-PIIQ
     Dosage: 108 MILLIGRAM
     Route: 042
     Dates: start: 20231117, end: 20231117
  3. POLIVY [Suspect]
     Active Substance: POLATUZUMAB VEDOTIN-PIIQ
     Dosage: 108 MILLIGRAM
     Route: 042
     Dates: start: 20231213, end: 20231213
  4. POLIVY [Suspect]
     Active Substance: POLATUZUMAB VEDOTIN-PIIQ
     Dosage: 108 MILLIGRAM
     Route: 042
     Dates: start: 20240110, end: 20240110
  5. POLIVY [Suspect]
     Active Substance: POLATUZUMAB VEDOTIN-PIIQ
     Dosage: 108 MILLIGRAM
     Route: 042
     Dates: start: 20240131, end: 20240131
  6. POLIVY [Suspect]
     Active Substance: POLATUZUMAB VEDOTIN-PIIQ
     Dosage: 108 MILLIGRAM
     Route: 042
     Dates: start: 20240221, end: 20240221
  7. RITUXAN [Suspect]
     Active Substance: RITUXIMAB
     Indication: Diffuse large B-cell lymphoma
     Dosage: 591 MILLIGRAM
     Route: 042
     Dates: start: 20231019, end: 20231019
  8. RITUXAN [Suspect]
     Active Substance: RITUXIMAB
     Dosage: 591 MILLIGRAM
     Route: 042
     Dates: start: 20231116, end: 20231116
  9. RITUXAN [Suspect]
     Active Substance: RITUXIMAB
     Dosage: 591 MILLIGRAM
     Route: 042
     Dates: start: 20231212, end: 20231212
  10. RITUXAN [Suspect]
     Active Substance: RITUXIMAB
     Dosage: 591 MILLIGRAM
     Route: 042
     Dates: start: 20240109, end: 20240109
  11. RITUXAN [Suspect]
     Active Substance: RITUXIMAB
     Dosage: 591 MILLIGRAM
     Route: 042
     Dates: start: 20240130, end: 20240130
  12. RITUXAN [Suspect]
     Active Substance: RITUXIMAB
     Dosage: 591 MILLIGRAM
     Route: 042
     Dates: start: 20240220, end: 20240220
  13. RITUXAN [Suspect]
     Active Substance: RITUXIMAB
     Dosage: 591 MILLIGRAM
     Route: 042
     Dates: start: 20240402, end: 20240402
  14. RITUXAN [Suspect]
     Active Substance: RITUXIMAB
     Dosage: 591 MILLIGRAM
     Route: 042
     Dates: start: 20240423, end: 20240423
  15. CYCLOPHOSPHAMIDE [Suspect]
     Active Substance: CYCLOPHOSPHAMIDE
     Indication: Diffuse large B-cell lymphoma
     Dosage: 1180 MILLIGRAM
     Route: 042
     Dates: start: 20231020, end: 20231020
  16. CYCLOPHOSPHAMIDE [Suspect]
     Active Substance: CYCLOPHOSPHAMIDE
     Dosage: 1180 MILLIGRAM
     Route: 042
     Dates: start: 20231117, end: 20231117
  17. CYCLOPHOSPHAMIDE [Suspect]
     Active Substance: CYCLOPHOSPHAMIDE
     Dosage: 1180 MILLIGRAM
     Route: 042
     Dates: start: 20231213, end: 20231213
  18. CYCLOPHOSPHAMIDE [Suspect]
     Active Substance: CYCLOPHOSPHAMIDE
     Dosage: 1180 MILLIGRAM
     Route: 042
     Dates: start: 20240110, end: 20240110
  19. CYCLOPHOSPHAMIDE [Suspect]
     Active Substance: CYCLOPHOSPHAMIDE
     Dosage: 1180 MILLIGRAM
     Route: 042
     Dates: start: 20240131, end: 20240131
  20. CYCLOPHOSPHAMIDE [Suspect]
     Active Substance: CYCLOPHOSPHAMIDE
     Dosage: 1180 MILLIGRAM
     Route: 042
     Dates: start: 20240221, end: 20240221
  21. DOXORUBICIN HYDROCHLORIDE [Suspect]
     Active Substance: DOXORUBICIN HYDROCHLORIDE
     Indication: Diffuse large B-cell lymphoma
     Dosage: 78 MILLIGRAM
     Route: 042
     Dates: start: 20231020, end: 20231020
  22. DOXORUBICIN HYDROCHLORIDE [Suspect]
     Active Substance: DOXORUBICIN HYDROCHLORIDE
     Dosage: 78 MILLIGRAM
     Route: 042
     Dates: start: 20231117, end: 20231117
  23. DOXORUBICIN HYDROCHLORIDE [Suspect]
     Active Substance: DOXORUBICIN HYDROCHLORIDE
     Dosage: 78 MILLIGRAM
     Route: 042
     Dates: start: 20231213, end: 20231213
  24. DOXORUBICIN HYDROCHLORIDE [Suspect]
     Active Substance: DOXORUBICIN HYDROCHLORIDE
     Dosage: 78 MILLIGRAM
     Route: 042
     Dates: start: 20240110, end: 20240110
  25. DOXORUBICIN HYDROCHLORIDE [Suspect]
     Active Substance: DOXORUBICIN HYDROCHLORIDE
     Dosage: 78 MILLIGRAM
     Route: 042
     Dates: start: 20240131, end: 20240131
  26. DOXORUBICIN HYDROCHLORIDE [Suspect]
     Active Substance: DOXORUBICIN HYDROCHLORIDE
     Dosage: 78 MILLIGRAM
     Route: 042
     Dates: start: 20240221, end: 20240221
  27. LENOGRASTIM [Suspect]
     Active Substance: LENOGRASTIM
     Indication: Product used for unknown indication
     Dosage: UNK
     Route: 065
  28. PREDNISOLONE [Suspect]
     Active Substance: PREDNISOLONE
     Indication: Diffuse large B-cell lymphoma
     Dosage: 60 MILLIGRAM
     Route: 050
     Dates: start: 20231020, end: 20231024
  29. PREDNISOLONE [Suspect]
     Active Substance: PREDNISOLONE
     Dosage: 60 MILLIGRAM
     Route: 050
     Dates: start: 20231117, end: 20231121
  30. PREDNISOLONE [Suspect]
     Active Substance: PREDNISOLONE
     Dosage: 60 MILLIGRAM
     Route: 050
     Dates: start: 20231213, end: 20231217
  31. PREDNISOLONE [Suspect]
     Active Substance: PREDNISOLONE
     Dosage: 60 MILLIGRAM
     Route: 050
     Dates: start: 20240110, end: 20240114
  32. PREDNISOLONE [Suspect]
     Active Substance: PREDNISOLONE
     Dosage: 60 MILLIGRAM
     Route: 050
     Dates: start: 20240131, end: 20240204
  33. PREDNISOLONE [Suspect]
     Active Substance: PREDNISOLONE
     Dosage: 60 MILLIGRAM
     Route: 050
     Dates: start: 20240221, end: 20240225
  34. PEGFILGRASTIM [Concomitant]
     Active Substance: PEGFILGRASTIM
     Dosage: UNK
     Route: 065

REACTIONS (2)
  - Neutrophil count decreased [Recovered/Resolved]
  - Alanine aminotransferase increased [Recovering/Resolving]

NARRATIVE: CASE EVENT DATE: 20231031
